FAERS Safety Report 4658440-1 (Version None)
Quarter: 2005Q2

REPORT INFORMATION
  Report Type: 
  Country: None (occurrence: None)
  Receive Date: 20050510
  Receipt Date: 20050510
  Transmission Date: 20051028
  Serious: Yes (Other)
  Sender: FDA-Public Use
  Company Number: None

PATIENT
  Age: 62 Year
  Sex: Male

DRUGS (10)
  1. GADOPENATE DIMEGLUMINE [Suspect]
     Dosage: 15 CC
  2. CELEXA [Concomitant]
  3. FLOMAX [Concomitant]
  4. M.V.I. [Concomitant]
  5. NEURONTIN [Concomitant]
  6. PRILOSEC [Concomitant]
  7. PROSCAR [Concomitant]
  8. TOPAMAX [Concomitant]
  9. VIT C TAB [Concomitant]
  10. TYLENOL (CAPLET) [Concomitant]

REACTIONS (8)
  - ABDOMINAL PAIN UPPER [None]
  - ANXIETY [None]
  - BODY TEMPERATURE INCREASED [None]
  - CHEST DISCOMFORT [None]
  - CHEST PAIN [None]
  - HYPERHIDROSIS [None]
  - NAUSEA [None]
  - TACHYPNOEA [None]
